FAERS Safety Report 19635761 (Version 1)
Quarter: 2021Q3

REPORT INFORMATION
  Report Type: Spontaneous
  Country: US (occurrence: US)
  Receive Date: 20210730
  Receipt Date: 20210730
  Transmission Date: 20211014
  Serious: Yes (Hospitalization)
  Sender: FDA-Public Use
  Company Number: None

PATIENT
  Age: 42 Year
  Sex: Male

DRUGS (1)
  1. HUMIRA [Suspect]
     Active Substance: ADALIMUMAB
     Indication: CROHN^S DISEASE
     Dosage: ?          OTHER FREQUENCY:DAY 1 THEN 80 MG;?
     Route: 058
     Dates: start: 20201027

REACTIONS (3)
  - Crohn^s disease [None]
  - Abscess [None]
  - Therapy interrupted [None]

NARRATIVE: CASE EVENT DATE: 20210615
